FAERS Safety Report 9181692 (Version 1)
Quarter: 2013Q1

REPORT INFORMATION
  Report Type: Other
  Country: GB (occurrence: GB)
  Receive Date: 20130322
  Receipt Date: 20130322
  Transmission Date: 20140127
  Serious: Yes (Other)
  Sender: FDA-Public Use
  Company Number: GB-BRISTOL-MYERS SQUIBB COMPANY-18700609

PATIENT
  Age: 65 Year
  Sex: Male
  Weight: 110 kg

DRUGS (5)
  1. METFORMIN HCL [Suspect]
     Indication: TYPE 2 DIABETES MELLITUS
  2. LIRAGLUTIDE [Suspect]
     Indication: TYPE 2 DIABETES MELLITUS
  3. GLICLAZIDE [Concomitant]
     Indication: TYPE 2 DIABETES MELLITUS
  4. OMEPRAZOLE [Concomitant]
  5. AMLODIPINE [Concomitant]

REACTIONS (1)
  - Renal failure acute [Unknown]
